FAERS Safety Report 23346459 (Version 1)
Quarter: 2023Q4

REPORT INFORMATION
  Report Type: Spontaneous
  Country: US (occurrence: None)
  Receive Date: 20231227
  Receipt Date: 20231227
  Transmission Date: 20240110
  Serious: Yes (Hospitalization)
  Sender: FDA-Public Use
  Company Number: None

PATIENT
  Age: 72 Year
  Sex: Male
  Weight: 73.7 kg

DRUGS (5)
  1. TECARTUS [Suspect]
     Active Substance: BREXUCABTAGENE AUTOLEUCEL
     Indication: Mantle cell lymphoma
     Dosage: OTHER FREQUENCY : ONCE;?
     Route: 041
     Dates: start: 20230706
  2. ACTEMRA [Concomitant]
     Active Substance: TOCILIZUMAB
     Dates: start: 20230715, end: 20230716
  3. anakinra (Kineret) [Concomitant]
     Dates: start: 20230715, end: 20230725
  4. dexAMETHasone (Decadron) injection [Concomitant]
     Dates: start: 20230714, end: 20230730
  5. levETIRAcetam (Keppra [Concomitant]
     Dates: start: 20230710, end: 20230905

REACTIONS (1)
  - Immune effector cell-associated neurotoxicity syndrome [None]

NARRATIVE: CASE EVENT DATE: 20230701
